FAERS Safety Report 25977147 (Version 4)
Quarter: 2025Q4

REPORT INFORMATION
  Report Type: Report from Study
  Country: US (occurrence: US)
  Receive Date: 20251030
  Receipt Date: 20251231
  Transmission Date: 20260118
  Serious: No
  Sender: DECIPHERA PHARMACEUTICALS
  Company Number: US-DECIPHERA PHARMACEUTICALS LLC-2025US001323

PATIENT
  Age: 46 Year
  Sex: Female

DRUGS (3)
  1. ROMVIMZA [Suspect]
     Active Substance: VIMSELTINIB
     Indication: Giant cell tumour of tendon sheath
     Dosage: 30 MILLIGRAM, TWICE WEEKLY (SATURDAY AND WEDNESDAY)
     Dates: start: 20250802, end: 2025
  2. ROMVIMZA [Suspect]
     Active Substance: VIMSELTINIB
     Dosage: 30 MILLIGRAM, TWICE WEEKLY (SATURDAY AND WEDNESDAY)
     Dates: start: 2025, end: 2025
  3. ROMVIMZA [Suspect]
     Active Substance: VIMSELTINIB
     Dosage: 20 MILLIGRAM, TWICE WEEKLY
     Dates: start: 2025

REACTIONS (6)
  - Swelling [Not Recovered/Not Resolved]
  - Hepatic enzyme abnormal [Unknown]
  - Periorbital swelling [Not Recovered/Not Resolved]
  - Peripheral swelling [Unknown]
  - Blood creatinine increased [Unknown]
  - Blood cholesterol increased [Unknown]

NARRATIVE: CASE EVENT DATE: 20250101
